FAERS Safety Report 5384878-3 (Version None)
Quarter: 2007Q3

REPORT INFORMATION
  Report Type: 
  Country: None (occurrence: None)
  Receive Date: 20070709
  Receipt Date: 20070625
  Transmission Date: 20080115
  Serious: Yes (Other)
  Sender: FDA-Public Use
  Company Number: 2007MP000304

PATIENT

DRUGS (1)
  1. GLIADEL [Suspect]
     Indication: METASTASES TO CENTRAL NERVOUS SYSTEM
     Dosage: ICER

REACTIONS (2)
  - CONVULSION [None]
  - RESPIRATORY DISORDER [None]
